FAERS Safety Report 11231176 (Version 1)
Quarter: 2015Q3

REPORT INFORMATION
  Report Type: Spontaneous
  Country: JP (occurrence: JP)
  Receive Date: 20150701
  Receipt Date: 20150701
  Transmission Date: 20151125
  Serious: Yes (Death, Hospitalization)
  Sender: FDA-Public Use
  Company Number: JP-TEVA-524794ISR

PATIENT
  Age: 61 Year
  Sex: Female
  Weight: 63 kg

DRUGS (13)
  1. E-FEN BUCCAL [Suspect]
     Active Substance: FENTANYL CITRATE
     Indication: BREAKTHROUGH PAIN
     Dosage: 200 MCG - 400 MCG: 100 MCG, 2 - 4 TIMES
     Route: 002
     Dates: start: 20141001, end: 20141013
  2. E-FEN BUCCAL [Suspect]
     Active Substance: FENTANYL CITRATE
     Dosage: 0 MCG - 400 MICROGRAM: 100 MCG, 0 - 4 TIMES
     Route: 002
     Dates: start: 20141014, end: 20141019
  3. FENTANYL. [Concomitant]
     Active Substance: FENTANYL
     Indication: CANCER PAIN
     Dosage: 1 MILLIGRAM DAILY;
     Route: 062
     Dates: start: 20140930, end: 20141003
  4. SOLACET D [Concomitant]
     Dosage: 500 ML DAILY;
     Route: 042
     Dates: end: 20141002
  5. ELNEOPA [Concomitant]
     Active Substance: UNSPECIFIED INGREDIENT
     Dosage: 1500 ML DAILY;
     Route: 042
     Dates: start: 20141003, end: 20141014
  6. INTRALIPOS [Concomitant]
     Active Substance: SOYBEAN OIL
     Dosage: 100 ML DAILY;
     Route: 042
     Dates: start: 20141007, end: 20141015
  7. OXYCODONE [Concomitant]
     Active Substance: OXYCODONE
     Indication: CANCER PAIN
     Route: 058
     Dates: start: 20140924, end: 20141001
  8. BFLUID [Concomitant]
     Active Substance: AMINO ACIDS\DEXTROSE\ELECTROLYTES NOS\VITAMINS
     Dosage: 500 ML DAILY;
     Route: 042
     Dates: end: 20141002
  9. OXYCODONE [Concomitant]
     Active Substance: OXYCODONE
     Indication: BREAKTHROUGH PAIN
     Route: 048
     Dates: start: 20141002
  10. FENTANYL. [Concomitant]
     Active Substance: FENTANYL
     Dosage: 2 MILLIGRAM DAILY;
     Route: 062
     Dates: start: 20141003, end: 20141015
  11. ELNEOPA [Concomitant]
     Active Substance: UNSPECIFIED INGREDIENT
     Dosage: 1000 MILLIMOL DAILY;
     Route: 042
     Dates: start: 20141015, end: 20141019
  12. FENTANYL. [Concomitant]
     Active Substance: FENTANYL
     Dosage: 3 MILLIGRAM DAILY;
     Route: 062
     Dates: start: 20141015, end: 20141019
  13. ACELIO [Concomitant]
     Active Substance: ACETAMINOPHEN
     Indication: CANCER PAIN
     Dosage: 1000 MILLIGRAM DAILY;
     Route: 042
     Dates: start: 20141007, end: 20141019

REACTIONS (6)
  - Constipation [Not Recovered/Not Resolved]
  - Nausea [Not Recovered/Not Resolved]
  - Malignant neoplasm of unknown primary site [Fatal]
  - Vomiting [Not Recovered/Not Resolved]
  - Drug ineffective [Unknown]
  - Pain [Unknown]

NARRATIVE: CASE EVENT DATE: 20141001
